FAERS Safety Report 8835842 (Version 2)
Quarter: 2012Q4

REPORT INFORMATION
  Report Type: 
  Country: US (occurrence: US)
  Receive Date: 20121011
  Receipt Date: 20121127
  Transmission Date: 20130627
  Serious: No
  Sender: FDA-Public Use
  Company Number: US-ASTELLAS-2012US009968

PATIENT
  Age: 62 Year
  Sex: Female
  Weight: 118 kg

DRUGS (1)
  1. VESICARE [Suspect]
     Indication: INCONTINENCE
     Dosage: 10 mg, UID/QD
     Route: 048

REACTIONS (1)
  - No adverse event [Unknown]
